FAERS Safety Report 9692752 (Version 1)
Quarter: 2013Q4

REPORT INFORMATION
  Report Type: Spontaneous
  Country: US (occurrence: None)
  Receive Date: 20131115
  Receipt Date: 20131115
  Transmission Date: 20140711
  Serious: Yes (Disabling)
  Sender: FDA-Public Use
  Company Number: None

PATIENT
  Age: 51 Year
  Sex: Female
  Weight: 70.31 kg

DRUGS (1)
  1. EXEMESTANE [Suspect]
     Indication: BREAST CANCER METASTATIC
     Dosage: .25MG / 1 PILL ONCE DAILY TAKEN BY MOUTH
     Route: 048
     Dates: start: 20120607, end: 20131113

REACTIONS (2)
  - Influenza like illness [None]
  - Quality of life decreased [None]
